FAERS Safety Report 5871047-3 (Version None)
Quarter: 2008Q3

REPORT INFORMATION
  Report Type: 
  Country: None (occurrence: None)
  Receive Date: 20080829
  Receipt Date: 20080625
  Transmission Date: 20090109
  Serious: No
  Sender: FDA-Public Use
  Company Number: 002#2#2008-00177

PATIENT
  Age: 80 Year
  Sex: Male
  Weight: 81.6475 kg

DRUGS (9)
  1. NEUPRO [Suspect]
     Indication: PARKINSON'S DISEASE
     Dosage: 6MG/ 24H, 1 IN 1 D, TRANSDERMAL, 4MG/ 24H, 1 IN 1 D, TRANSDERMAL
     Route: 062
     Dates: start: 20070801, end: 20070901
  2. NEUPRO [Suspect]
     Indication: PARKINSON'S DISEASE
     Dosage: 6MG/ 24H, 1 IN 1 D, TRANSDERMAL, 4MG/ 24H, 1 IN 1 D, TRANSDERMAL
     Route: 062
     Dates: start: 20070901, end: 20080301
  3. NEUPRO [Suspect]
     Indication: PARKINSON'S DISEASE
     Dosage: 6MG/ 24H, 1 IN 1 D, TRANSDERMAL, 4MG/ 24H, 1 IN 1 D, TRANSDERMAL
     Route: 062
     Dates: start: 20080301, end: 20080401
  4. NEUPRO [Suspect]
  5. REQUIP [Suspect]
     Indication: PARKINSON'S DISEASE
     Dosage: 2MG, 1 IN 1 D, ORAL
     Route: 048
     Dates: start: 20080501
  6. FERROUS SUL TAB [Suspect]
     Indication: BLOOD IRON DECREASED
     Dosage: 1DF,3 IN 1 D, ORAL
     Route: 048
     Dates: start: 20080501
  7. AZILECT [Concomitant]
  8. ATIVAN [Concomitant]
  9. PRILOSEC [Concomitant]

REACTIONS (5)
  - BLOOD IRON DECREASED [None]
  - HAEMOGLOBIN DECREASED [None]
  - PAIN IN EXTREMITY [None]
  - PHARMACEUTICAL PRODUCT COMPLAINT [None]
  - THERMAL BURN [None]
